FAERS Safety Report 12214415 (Version 14)
Quarter: 2018Q2

REPORT INFORMATION
  Report Type: Report from Study
  Country: AR (occurrence: AR)
  Receive Date: 20160328
  Receipt Date: 20180411
  Transmission Date: 20180711
  Serious: Yes (Other)
  Sender: FDA-Public Use
  Company Number: PHHY2015AR079121

PATIENT
  Age: 59 Year
  Sex: Female

DRUGS (4)
  1. RIVOTRIL [Concomitant]
     Active Substance: CLONAZEPAM
     Indication: PRODUCT USED FOR UNKNOWN INDICATION
     Route: 065
  2. AFINITOR [Suspect]
     Active Substance: EVEROLIMUS
     Indication: NEUROENDOCRINE TUMOUR
     Dosage: 10 MG, QD
     Route: 065
  3. AFINITOR [Suspect]
     Active Substance: EVEROLIMUS
     Dosage: 5 MG, QD
     Route: 065
     Dates: start: 20150614
  4. SANDOSTATIN LAR DEPOT [Suspect]
     Active Substance: OCTREOTIDE ACETATE
     Indication: NEUROENDOCRINE TUMOUR
     Dosage: 30 MG, QMO
     Route: 065
     Dates: start: 20141101

REACTIONS (44)
  - Hepatic cyst [Not Recovered/Not Resolved]
  - Decreased immune responsiveness [Not Recovered/Not Resolved]
  - Nasal inflammation [Recovering/Resolving]
  - Influenza [Recovering/Resolving]
  - Haemorrhoids [Unknown]
  - Hordeolum [Recovered/Resolved]
  - Peripheral swelling [Not Recovered/Not Resolved]
  - Upper respiratory tract congestion [Unknown]
  - Diarrhoea [Recovered/Resolved]
  - Asthenia [Unknown]
  - Chest discomfort [Not Recovered/Not Resolved]
  - Papule [Unknown]
  - Discomfort [Not Recovered/Not Resolved]
  - Anxiety [Unknown]
  - Musculoskeletal discomfort [Not Recovered/Not Resolved]
  - Musculoskeletal chest pain [Not Recovered/Not Resolved]
  - Anaemia [Not Recovered/Not Resolved]
  - Pyrexia [Unknown]
  - Abdominal discomfort [Recovering/Resolving]
  - Osteoporosis [Not Recovered/Not Resolved]
  - Dysphonia [Recovering/Resolving]
  - Stomatitis [Recovered/Resolved]
  - Headache [Not Recovered/Not Resolved]
  - Liver induration [Not Recovered/Not Resolved]
  - Fatigue [Unknown]
  - Rhinalgia [Recovering/Resolving]
  - Dysprosody [Unknown]
  - Pain in extremity [Unknown]
  - Constipation [Not Recovered/Not Resolved]
  - Dry eye [Unknown]
  - Impaired healing [Unknown]
  - Tonsillitis [Recovered/Resolved]
  - Somnolence [Not Recovered/Not Resolved]
  - Osteoarthritis [Unknown]
  - Skin exfoliation [Not Recovered/Not Resolved]
  - Flatulence [Recovered/Resolved]
  - Malaise [Not Recovered/Not Resolved]
  - Skin mass [Recovered/Resolved]
  - Muscle contracture [Unknown]
  - Aphonia [Unknown]
  - Nail disorder [Recovered/Resolved]
  - Arthralgia [Not Recovered/Not Resolved]
  - Abdominal distension [Recovered/Resolved]
  - Angina pectoris [Recovered/Resolved]

NARRATIVE: CASE EVENT DATE: 201510
